FAERS Safety Report 8037460-3 (Version None)
Quarter: 2012Q1

REPORT INFORMATION
  Report Type: 
  Country: None (occurrence: None)
  Receive Date: 20120111
  Receipt Date: 20120109
  Transmission Date: 20120608
  Serious: Yes (Other)
  Sender: FDA-Public Use
  Company Number: US-PFIZER INC-2011284949

PATIENT
  Sex: Female
  Weight: 81.633 kg

DRUGS (21)
  1. PRAVASTATIN [Concomitant]
     Dosage: 40 MG, QHS
  2. COREG [Concomitant]
     Dosage: 25 MG, 2X/DAY
     Route: 048
  3. FOLIC ACID [Concomitant]
     Dosage: 1 MG, 1X/DAY
     Route: 048
  4. METHOTREXATE [Concomitant]
     Dosage: 20 MG, (80 UNITS WEEKLY)
     Route: 058
  5. LEXAPRO [Concomitant]
     Dosage: 20 MG, 1X/DAY (QDAY)
     Route: 048
  6. AMLODIPINE [Concomitant]
     Dosage: 10 MG, 1X/DAY
     Route: 048
  7. METFORMIN [Concomitant]
     Dosage: 500 MG, 2X/DAY
     Route: 048
  8. VICODIN [Concomitant]
     Indication: PAIN
     Dosage: 5/500 Q 6 TO 8 (NO UNITS PROVIDED)
     Route: 048
  9. SLO-MAG [Suspect]
     Dosage: UNK
     Route: 048
  10. CELEBREX [Concomitant]
     Dosage: 200 MG, 1X/DAY
     Route: 048
  11. POTASSIUM CHLORIDE [Concomitant]
     Dosage: 20 MG, 1X/DAY
  12. ATIVAN [Concomitant]
     Dosage: 0.5 MG, 2X/DAY
     Route: 048
  13. TOVIAZ [Suspect]
     Indication: POLLAKIURIA
     Dosage: 8 MG, 2X/DAY
     Route: 048
     Dates: end: 20100101
  14. PRILOSEC [Concomitant]
     Dosage: 20 MG, 2X/DAY
     Route: 048
  15. PREDNISONE [Concomitant]
     Dosage: 7.5 MG, EVERY MORNING
  16. FIORICET [Concomitant]
     Indication: MYALGIA
     Route: 048
  17. ACYCLOVIR [Concomitant]
     Dosage: 800 (NO UNITS) TWICE A DAY
  18. LISINOPRIL [Concomitant]
     Dosage: 20 MG, 1X/DAY
     Route: 048
  19. TOVIAZ [Suspect]
     Dosage: 4 MG, UNK
  20. HYDROCHLOROTHIAZIDE [Concomitant]
     Dosage: 25 MG, 2X/DAY
     Route: 048
  21. FIORICET [Concomitant]
     Indication: HEADACHE

REACTIONS (5)
  - MEDICAL DEVICE IMPLANTATION [None]
  - DRY MOUTH [None]
  - DRUG EFFECT DECREASED [None]
  - DRY EYE [None]
  - DEVICE INEFFECTIVE [None]
